FAERS Safety Report 6295605-X (Version None)
Quarter: 2009Q3

REPORT INFORMATION
  Report Type: 
  Country: None (occurrence: None)
  Receive Date: 20090731
  Receipt Date: 20090716
  Transmission Date: 20100115
  Serious: Yes (Death, Hospitalization)
  Sender: FDA-Public Use
  Company Number: 1-19283110

PATIENT
  Sex: Male

DRUGS (2)
  1. AMMONAPS (FORMULATION UNSPECIFIED) [Suspect]
     Indication: ORNITHINE TRANSCARBAMOYLASE DEFICIENCY
  2. BENZOATE [Concomitant]

REACTIONS (1)
  - DEATH [None]
